FAERS Safety Report 5811654-7 (Version None)
Quarter: 2008Q3

REPORT INFORMATION
  Report Type: 
  Country: None (occurrence: None)
  Receive Date: 20080715
  Receipt Date: 20080715
  Transmission Date: 20090109
  Serious: Yes (Life-Threatening)
  Sender: FDA-Public Use
  Company Number: None

PATIENT
  Age: 67 Year
  Sex: Female
  Weight: 72.5755 kg

DRUGS (2)
  1. PROAIR HFA [Suspect]
     Indication: ASTHMA
  2. PROAIR HFA [Suspect]
     Indication: CHRONIC OBSTRUCTIVE PULMONARY DISEASE

REACTIONS (6)
  - DRUG INEFFECTIVE [None]
  - EMOTIONAL DISTRESS [None]
  - FEAR [None]
  - HAEMOPTYSIS [None]
  - PHARMACEUTICAL PRODUCT COMPLAINT [None]
  - THERAPEUTIC RESPONSE UNEXPECTED WITH DRUG SUBSTITUTION [None]
